FAERS Safety Report 21823537 (Version 1)
Quarter: 2023Q1

REPORT INFORMATION
  Report Type: Spontaneous
  Country: US (occurrence: None)
  Receive Date: 20230104
  Receipt Date: 20230104
  Transmission Date: 20230418
  Serious: Yes (unspecified)
  Sender: FDA-Public Use
  Company Number: None

PATIENT
  Sex: 0

DRUGS (1)
  1. RITUXIMAB [Suspect]
     Active Substance: RITUXIMAB

REACTIONS (6)
  - Flushing [None]
  - Erythema [None]
  - Erythema [None]
  - Erythema [None]
  - Hypotension [None]
  - Infusion related reaction [None]

NARRATIVE: CASE EVENT DATE: 20221111
